FAERS Safety Report 11198457 (Version 1)
Quarter: 2015Q2

REPORT INFORMATION
  Report Type: Spontaneous
  Country: US (occurrence: None)
  Receive Date: 20150616
  Receipt Date: 20150616
  Transmission Date: 20150821
  Serious: Yes (Other)
  Sender: FDA-Public Use
  Company Number: US-H14001-15-00924

PATIENT
  Sex: Male

DRUGS (9)
  1. PROPOFOL. [Suspect]
     Active Substance: PROPOFOL
     Indication: SEDATION
     Route: 064
  2. ZIPRASIDONE [Concomitant]
     Active Substance: ZIPRASIDONE
  3. CLOBAZAM [Suspect]
     Active Substance: CLOBAZAM
     Indication: PSYCHOGENIC SEIZURE
     Route: 064
  4. BROMOCRIPTINE [Concomitant]
     Active Substance: BROMOCRIPTINE
  5. LEVETIRACETAM. [Suspect]
     Active Substance: LEVETIRACETAM
     Indication: PSYCHOGENIC SEIZURE
     Route: 064
  6. IMMUNOGLOBULIN (IMMUNOGLOBULIN HUMAN NORMAL) [Concomitant]
  7. METHYLPREDNISOLONE. [Concomitant]
     Active Substance: METHYLPREDNISOLONE
  8. MIDAZOLAM [Suspect]
     Active Substance: MIDAZOLAM\MIDAZOLAM HYDROCHLORIDE
     Indication: PSYCHOGENIC SEIZURE
     Route: 064
  9. PHENYTOIN (PHENYTOIN) (UNKNOWN) (PHENYTOIN) [Suspect]
     Active Substance: PHENYTOIN
     Indication: PSYCHOGENIC SEIZURE
     Route: 064

REACTIONS (8)
  - Supraventricular tachycardia [None]
  - Mental status changes [None]
  - Neuroleptic malignant syndrome [None]
  - Acute respiratory failure [None]
  - Foetal exposure during pregnancy [None]
  - Autonomic nervous system imbalance [None]
  - Neonatal hyponatraemia [None]
  - Generalised tonic-clonic seizure [None]
